FAERS Safety Report 8438758 (Version 2)
Quarter: 2013Q4

REPORT INFORMATION
  Report Type: Spontaneous
  Country: GB (occurrence: GB)
  Receive Date: 20120302
  Receipt Date: 20131212
  Transmission Date: 20140711
  Serious: Yes (Death, Other)
  Sender: FDA-Public Use
  Company Number: GB-ROCHE-1044255

PATIENT
  Age: 18 Year
  Sex: Female

DRUGS (1)
  1. ROACCUTANE [Suspect]
     Indication: ACNE
     Route: 065

REACTIONS (8)
  - Stress [Unknown]
  - Suicide attempt [Unknown]
  - Completed suicide [Fatal]
  - Fatigue [Unknown]
  - Social avoidant behaviour [Unknown]
  - Depression [Unknown]
  - Self injurious behaviour [Unknown]
  - Completed suicide [Fatal]
